FAERS Safety Report 21424371 (Version 2)
Quarter: 2022Q4

REPORT INFORMATION
  Report Type: Spontaneous
  Country: US (occurrence: US)
  Receive Date: 20221007
  Receipt Date: 20221014
  Transmission Date: 20230113
  Serious: Yes (Other)
  Sender: FDA-Public Use
  Company Number: US-MALLINCKRODT-T202205195

PATIENT
  Age: 39 Year
  Sex: Male
  Weight: 64 kg

DRUGS (3)
  1. UVADEX [Suspect]
     Active Substance: METHOXSALEN
     Indication: Graft versus host disease
     Dosage: UNK, EXTRACORPOREAL, 2X EVERY OTHER WEEK
     Route: 050
  2. ANTICOAGULANT CITRATE DEXTROSE SOLUTION (ACD) NOS [Concomitant]
     Active Substance: CITRIC ACID MONOHYDRATE\DEXTROSE\SODIUM CITRATE
     Indication: Anticoagulant therapy
     Dosage: UNK, RATIO: 1:10
     Route: 042
  3. ALTEPLASE [Concomitant]
     Active Substance: ALTEPLASE
     Indication: Thrombolysis
     Route: 042

REACTIONS (4)
  - Oxygen saturation decreased [Recovered/Resolved]
  - Thrombosis in device [Recovered/Resolved]
  - Cough [Recovered/Resolved]
  - Product use in unapproved indication [Unknown]

NARRATIVE: CASE EVENT DATE: 20220926
